FAERS Safety Report 6427126-5 (Version None)
Quarter: 2009Q4

REPORT INFORMATION
  Report Type: 
  Country: None (occurrence: None)
  Receive Date: 20091103
  Receipt Date: 20091103
  Transmission Date: 20100525
  Serious: Yes (Hospitalization)
  Sender: FDA-Public Use
  Company Number: None

PATIENT
  Age: 38 Year
  Sex: Female

DRUGS (1)
  1. FENTANYL [Suspect]
     Indication: CHEST PAIN
     Dosage: IV
     Route: 042
     Dates: start: 20081009, end: 20081009

REACTIONS (3)
  - MUSCLE RIGIDITY [None]
  - RESPIRATORY DEPRESSION [None]
  - RESPIRATORY DISTRESS [None]
